FAERS Safety Report 23524463 (Version 1)
Quarter: 2024Q1

REPORT INFORMATION
  Report Type: 
  Country: None (occurrence: None)
  Receive Date: 20240214
  Receipt Date: 20240214
  Transmission Date: 20240410
  Serious: No
  Sender: FDA-Public Use
  Company Number: DE-ROCHE-3136763

PATIENT

DRUGS (4)
  1. OCREVUS [Suspect]
     Active Substance: OCRELIZUMAB
     Dosage: 600 MG ONCE IN 307 DAYS?600MG, 181 DAYS
     Dates: start: 20220707
  2. OCREVUS [Suspect]
     Active Substance: OCRELIZUMAB
     Dosage: THEN ONCE EVERY 307 DAYS.
     Dates: start: 20230111
  3. CANDESARTAN [Concomitant]
     Active Substance: CANDESARTAN
  4. ASPIRIN [Concomitant]
     Active Substance: ASPIRIN

REACTIONS (10)
  - Tuberculosis [None]
  - Fatigue [None]
  - Middle insomnia [None]
  - Ataxia [None]
  - Paraesthesia [None]
  - Pain in extremity [None]
  - Fatigue [None]
  - Anxiety [None]
  - Blood glucose fluctuation [None]
  - Vitamin D deficiency [None]

NARRATIVE: CASE EVENT DATE: 20220707
